FAERS Safety Report 15328449 (Version 2)
Quarter: 2018Q3

REPORT INFORMATION
  Report Type: Spontaneous
  Country: IL (occurrence: IL)
  Receive Date: 20180829
  Receipt Date: 20180830
  Transmission Date: 20181010
  Serious: Yes (Other)
  Sender: FDA-Public Use
  Company Number: IL-ROCHE-2174599

PATIENT
  Age: 49 Year
  Sex: Male

DRUGS (8)
  1. XELODA [Suspect]
     Active Substance: CAPECITABINE
     Indication: PANCREATIC CARCINOMA
     Dosage: SIX MONTH THERAPY DURATION.
     Route: 065
     Dates: start: 201706, end: 20171212
  2. 5?FLUOROURACIL [Suspect]
     Active Substance: FLUOROURACIL
     Indication: PANCREATIC CARCINOMA
     Route: 065
  3. METFORMIN HCL [Concomitant]
     Active Substance: METFORMIN HYDROCHLORIDE
     Route: 048
  4. GEMZAR [Suspect]
     Active Substance: GEMCITABINE HYDROCHLORIDE
     Indication: PANCREATIC CARCINOMA
     Dosage: SIX MONTH THERAPY DURATION.
     Route: 065
     Dates: start: 201706, end: 20171212
  5. ALPHA LIPOIC ACID [Concomitant]
     Active Substance: .ALPHA.-LIPOIC ACID
  6. AMARYL [Concomitant]
     Active Substance: GLIMEPIRIDE
     Route: 048
  7. IRINOTECAN [Suspect]
     Active Substance: IRINOTECAN
     Indication: PANCREATIC CARCINOMA
     Route: 065
  8. OXALIPLATIN. [Suspect]
     Active Substance: OXALIPLATIN
     Indication: PANCREATIC CARCINOMA
     Route: 065

REACTIONS (13)
  - Ascites [Unknown]
  - Weight decreased [Unknown]
  - Hepatic function abnormal [Recovered/Resolved]
  - Pancytopenia [Unknown]
  - Syncope [Recovered/Resolved]
  - Metastases to liver [Unknown]
  - Liver injury [Unknown]
  - Loss of consciousness [Recovered/Resolved]
  - Iron deficiency anaemia [Unknown]
  - Diarrhoea [Recovered/Resolved]
  - Neuropathy peripheral [Recovering/Resolving]
  - Nausea [Recovered/Resolved]
  - Pancreatic enlargement [Unknown]

NARRATIVE: CASE EVENT DATE: 20171115
